FAERS Safety Report 12106302 (Version 1)
Quarter: 2016Q1

REPORT INFORMATION
  Report Type: Spontaneous
  Country: HU (occurrence: HU)
  Receive Date: 20160223
  Receipt Date: 20160223
  Transmission Date: 20160526
  Serious: Yes (Hospitalization, Other)
  Sender: FDA-Public Use
  Company Number: HU-PFIZER INC-2015400156

PATIENT
  Age: 62 Year
  Sex: Male

DRUGS (7)
  1. CITALOPRAM [Concomitant]
     Active Substance: CITALOPRAM HYDROBROMIDE
     Indication: DEPRESSION
     Dosage: 10 MG, AS NEEDED
  2. ALGOPYRIN [Concomitant]
     Active Substance: METAMIZOLE SODIUM
     Indication: NEURALGIA
     Dosage: UNK, AS NEEDED
  3. XANAX XR [Suspect]
     Active Substance: ALPRAZOLAM
     Indication: DEPRESSION
     Dosage: 0.5 MG, AS NEEDED
     Dates: end: 2016
  4. RIVOTRIL [Suspect]
     Active Substance: CLONAZEPAM
     Indication: INSOMNIA
  5. SEDUXEN [Concomitant]
     Indication: NEURALGIA
     Dosage: UNK, AS NEEDED
  6. RIVOTRIL [Suspect]
     Active Substance: CLONAZEPAM
     Indication: MOOD SWINGS
     Dosage: UNK
     Dates: start: 2015, end: 2016
  7. XANAX [Suspect]
     Active Substance: ALPRAZOLAM
     Indication: DEPRESSION
     Dosage: 0.5 MG, AS NEEDED

REACTIONS (5)
  - Dependence [Not Recovered/Not Resolved]
  - Muscular weakness [Unknown]
  - Insomnia [Unknown]
  - Mood swings [Unknown]
  - Condition aggravated [Unknown]

NARRATIVE: CASE EVENT DATE: 2014
